FAERS Safety Report 9592416 (Version 1)
Quarter: 2013Q3

REPORT INFORMATION
  Report Type: Spontaneous
  Country: US (occurrence: None)
  Receive Date: 20130930
  Receipt Date: 20130930
  Transmission Date: 20140515
  Serious: Yes (Other)
  Sender: FDA-Public Use
  Company Number: 1000046753

PATIENT
  Age: 60 Year
  Sex: Female

DRUGS (4)
  1. LINZESS [Suspect]
     Indication: CONSTIPATION
     Dosage: 145MCG (145MCG, 1 IN 1)
     Route: 048
     Dates: start: 20130710
  2. CALCIUM (CALCIUM) (CALCIUM) [Concomitant]
  3. MAGNESIUM (MAGNESIUM) (MAGNESIUM) [Concomitant]
  4. VITAMIN D (VITAMIN D) (VITAMIN D) [Concomitant]

REACTIONS (1)
  - Drug ineffective [None]
